FAERS Safety Report 6911451-5 (Version None)
Quarter: 2010Q3

REPORT INFORMATION
  Report Type: 
  Country: None (occurrence: None)
  Receive Date: 20100806
  Receipt Date: 20100728
  Transmission Date: 20110219
  Serious: Yes (Hospitalization)
  Sender: FDA-Public Use
  Company Number: FR-JNJCH-2010017712

PATIENT
  Sex: Female

DRUGS (13)
  1. ZYRTEC [Suspect]
     Indication: PRODUCT USED FOR UNKNOWN INDICATION
     Dosage: TEXT:UNKNOWN
     Route: 048
     Dates: start: 20090922, end: 20090927
  2. PIPERACILLIN AND TAZOBACTAM [Suspect]
     Indication: PRODUCT USED FOR UNKNOWN INDICATION
     Dosage: TEXT:UNKNOWN
     Route: 042
     Dates: start: 20090901, end: 20090927
  3. TARGOCID [Suspect]
     Indication: PRODUCT USED FOR UNKNOWN INDICATION
     Dosage: TEXT:UNKNOWN
     Route: 042
     Dates: start: 20090901, end: 20090927
  4. AMBISOME [Suspect]
     Indication: PRODUCT USED FOR UNKNOWN INDICATION
     Dosage: TEXT:UNKNOWN
     Route: 042
     Dates: start: 20090912, end: 20090927
  5. ULTIVA [Suspect]
     Indication: PRODUCT USED FOR UNKNOWN INDICATION
     Dosage: TEXT:UNKNOWN
     Route: 042
     Dates: start: 20090923, end: 20090927
  6. HYPNOVEL [Suspect]
     Indication: PRODUCT USED FOR UNKNOWN INDICATION
     Dosage: TEXT:UNKNOWN
     Route: 042
     Dates: start: 20090901, end: 20090922
  7. SUFENTANIL [Suspect]
     Indication: PRODUCT USED FOR UNKNOWN INDICATION
     Dosage: TEXT:UNKNOWN
     Route: 042
     Dates: start: 20090901, end: 20090922
  8. NORADRENALINE [Suspect]
     Indication: PRODUCT USED FOR UNKNOWN INDICATION
     Dosage: TEXT:UNKNOWN
     Route: 042
     Dates: start: 20090901, end: 20090929
  9. LOVENOX [Concomitant]
     Indication: THROMBOSIS PROPHYLAXIS
     Dosage: TEXT:UNKNOWN
     Route: 058
     Dates: start: 20090901, end: 20090905
  10. LOVENOX [Concomitant]
     Dosage: TEXT:UNKNOWN
     Route: 058
     Dates: start: 20091129, end: 20091221
  11. ARIXTRA [Concomitant]
     Indication: THROMBOSIS PROPHYLAXIS
     Dosage: TEXT:UNKNOWN
     Route: 058
     Dates: start: 20090905, end: 20090927
  12. ARIXTRA [Concomitant]
     Dosage: TEXT:UNKNOWN
     Route: 058
     Dates: start: 20091016, end: 20091128
  13. ORGARAN [Concomitant]
     Indication: PRODUCT USED FOR UNKNOWN INDICATION
     Dosage: TEXT:UNKNOWN
     Route: 058
     Dates: start: 20090928, end: 20091015

REACTIONS (1)
  - THROMBOCYTOPENIA [None]
